FAERS Safety Report 9469881 (Version 1)
Quarter: 2013Q3

REPORT INFORMATION
  Report Type: Spontaneous
  Country: US (occurrence: None)
  Receive Date: 20130820
  Receipt Date: 20130820
  Transmission Date: 20140515
  Serious: Yes (Life-Threatening)
  Sender: FDA-Public Use
  Company Number: None

PATIENT
  Age: 67 Year
  Sex: Male
  Weight: 98.3 kg

DRUGS (1)
  1. VANCOMYCIN [Suspect]
     Indication: URINARY TRACT INFECTION
     Route: 042
     Dates: start: 20120727, end: 20120728

REACTIONS (6)
  - Respiratory failure [None]
  - Hypoxia [None]
  - Acute pulmonary oedema [None]
  - Anaphylactic reaction [None]
  - Myocardial infarction [None]
  - Blood pressure increased [None]
